FAERS Safety Report 7393698-X (Version None)
Quarter: 2011Q1

REPORT INFORMATION
  Report Type: 
  Country: None (occurrence: None)
  Receive Date: 20110331
  Receipt Date: 20110331
  Transmission Date: 20110831
  Serious: No
  Sender: FDA-Public Use
  Company Number: None

PATIENT
  Age: 70 Year
  Sex: Female
  Weight: 47.7 kg

DRUGS (1)
  1. NITROFURANTOIN MONOHYDRATE/MACROCRYSTALS [Suspect]
     Indication: URINARY TRACT INFECTION
     Dosage: 1 CAPSULE DAILY X 2 BY MOUTH
     Route: 048
     Dates: start: 20110225

REACTIONS (6)
  - ASTHENIA [None]
  - COUGH [None]
  - PETECHIAE [None]
  - PYREXIA [None]
  - RASH [None]
  - HYPERSOMNIA [None]
